FAERS Safety Report 5787667-0 (Version None)
Quarter: 2008Q2

REPORT INFORMATION
  Report Type: 
  Country: None (occurrence: None)
  Receive Date: 20080625
  Receipt Date: 20071008
  Transmission Date: 20081010
  Serious: No
  Sender: FDA-Public Use
  Company Number: US-ASTRAZENECA-2007UW23364

PATIENT
  Age: 56 Year
  Sex: Male

DRUGS (2)
  1. PULMICORT FLEXHALER [Suspect]
     Route: 055
     Dates: start: 20070701
  2. FORADIL [Concomitant]
     Dates: start: 20040101

REACTIONS (2)
  - ALOPECIA [None]
  - GINGIVAL PAIN [None]
